FAERS Safety Report 8000513-X (Version None)
Quarter: 2011Q4

REPORT INFORMATION
  Report Type: 
  Country: None (occurrence: None)
  Receive Date: 20111222
  Receipt Date: 20111208
  Transmission Date: 20120403
  Serious: Yes (Hospitalization, Disabling)
  Sender: FDA-Public Use
  Company Number: US-RANBAXY-2011RR-45337

PATIENT
  Sex: Female

DRUGS (13)
  1. IBUPROFEN [Suspect]
     Indication: PRODUCT USED FOR UNKNOWN INDICATION
     Dosage: UNK
     Route: 065
  2. LEVAQUIN [Suspect]
     Indication: STAPHYLOCOCCAL INFECTION
     Dosage: 750 MG, UNK
     Route: 065
  3. LEVAQUIN [Suspect]
     Indication: VOMITING
  4. VANCOMYCIN HYCHLORIDE [Suspect]
     Indication: STAPHYLOCOCCAL INFECTION
     Dosage: UNK
     Route: 042
  5. LEVAQUIN [Suspect]
     Indication: URINARY TRACT INFECTION
     Dosage: 500 MG, UNK
     Route: 042
     Dates: start: 20090314
  6. LEVAQUIN [Suspect]
     Indication: DIARRHOEA
  7. SOLU-MEDROL [Concomitant]
     Indication: PRODUCT USED FOR UNKNOWN INDICATION
     Dosage: UNK
     Route: 065
  8. AMOXICILLIN [Suspect]
     Indication: PSORIASIS
     Dosage: 500 MG, UNK
     Route: 065
     Dates: start: 20090306
  9. PANTOPRAZOLE [Suspect]
     Indication: PRODUCT USED FOR UNKNOWN INDICATION
     Dosage: UNK
     Route: 065
  10. LEVAQUIN [Suspect]
     Indication: BACTERIAL INFECTION
  11. LEVAQUIN [Suspect]
     Indication: GASTROENTERITIS
  12. LEVAQUIN [Suspect]
     Indication: NAUSEA
  13. LEVAQUIN [Suspect]
     Indication: PSORIASIS

REACTIONS (10)
  - CEREBROVASCULAR ACCIDENT [None]
  - STEVENS-JOHNSON SYNDROME [None]
  - CEREBRAL HAEMORRHAGE [None]
  - PARALYSIS [None]
  - TOXIC EPIDERMAL NECROLYSIS [None]
  - ANAEMIA [None]
  - SUBARACHNOID HAEMORRHAGE [None]
  - RENAL FAILURE [None]
  - CARDIAC FAILURE CONGESTIVE [None]
  - CARDIAC VALVE DISEASE [None]
